FAERS Safety Report 24873776 (Version 1)
Quarter: 2025Q1

REPORT INFORMATION
  Report Type: Spontaneous
  Country: AR (occurrence: AR)
  Receive Date: 20250122
  Receipt Date: 20250122
  Transmission Date: 20250408
  Serious: Yes (Other)
  Sender: AMGEN
  Company Number: AR-AMGEN-ARGSP2025009161

PATIENT
  Age: 10 Year
  Sex: Male

DRUGS (2)
  1. XGEVA [Suspect]
     Active Substance: DENOSUMAB
     Indication: Aneurysmal bone cyst
     Dosage: 70 MILLIGRAM/SQ. METER, Q2WK
     Route: 065
  2. XGEVA [Suspect]
     Active Substance: DENOSUMAB
     Indication: Off label use
     Dosage: 70 MILLIGRAM/SQ. METER, Q4WK
     Route: 065

REACTIONS (3)
  - Aneurysmal bone cyst [Unknown]
  - Drug effective for unapproved indication [Unknown]
  - Off label use [Unknown]
